FAERS Safety Report 6751534-6 (Version None)
Quarter: 2010Q2

REPORT INFORMATION
  Report Type: 
  Country: None (occurrence: None)
  Receive Date: 20100602
  Receipt Date: 20100601
  Transmission Date: 20101027
  Serious: Yes (Other)
  Sender: FDA-Public Use
  Company Number: FR-ROCHE-705447

PATIENT
  Sex: Female
  Weight: 0.5 kg

DRUGS (25)
  1. RIVOTRIL [Suspect]
     Route: 064
     Dates: start: 20020101
  2. AMITRIPTYLINE HCL [Suspect]
     Dosage: DOSE: 1 BOTTLE; STRENGTH: 40 MG.ML
     Route: 064
     Dates: start: 20081116
  3. AMITRIPTYLINE HCL [Suspect]
     Dosage: 18 DROPS MORNING AND EVENING
     Route: 064
     Dates: start: 20020101, end: 20081001
  4. LEXOMIL [Suspect]
     Route: 064
     Dates: start: 20081116
  5. LEXOMIL [Suspect]
     Route: 064
     Dates: end: 20081001
  6. LYSANXIA [Suspect]
     Route: 064
     Dates: start: 20020101, end: 20081001
  7. TOPIRAMATE [Suspect]
     Route: 064
     Dates: start: 20020101, end: 20081001
  8. ZYPREXA [Suspect]
     Route: 064
     Dates: start: 20081001
  9. ZYPREXA [Suspect]
     Route: 064
     Dates: start: 20081126
  10. ZYPREXA [Suspect]
     Route: 064
     Dates: start: 20090213
  11. IMOVANE [Suspect]
     Dosage: FORM: DIVISIBLE COATED TABLET
     Route: 064
     Dates: start: 20081118, end: 20090201
  12. LARGACTIL [Suspect]
     Route: 064
     Dates: start: 20081118
  13. SERESTA [Suspect]
     Route: 064
     Dates: start: 20081118
  14. SPASFON-LYOC [Suspect]
     Indication: DRUG USE FOR UNKNOWN INDICATION
     Dosage: FORM: ORAL LYOPHILISATE
     Route: 064
     Dates: start: 20081118
  15. EFFEXOR [Suspect]
     Route: 064
     Dates: start: 20081120
  16. EFFEXOR [Suspect]
     Dosage: DOSE INCREASED
     Route: 064
  17. ZOLPIDEM [Suspect]
     Dosage: FORM: DIVISIBLE COATED TABLET
     Route: 064
     Dates: start: 20081126, end: 20081201
  18. THERALENE [Suspect]
     Route: 064
     Dates: start: 20090115
  19. THERALENE [Suspect]
     Dosage: DOSE REDUCED
     Route: 064
  20. SEROPLEX [Suspect]
     Dosage: FORM: DIVISIBLE COATED TABLET
     Route: 064
     Dates: start: 20090213, end: 20090228
  21. AKINETON [Suspect]
     Dosage: DRUG NAME: AKINETON L.P.
     Route: 064
     Dates: start: 20090213
  22. NEULEPTIL [Suspect]
     Route: 064
     Dates: start: 20090225
  23. CLAMOXYL [Suspect]
     Indication: DRUG USE FOR UNKNOWN INDICATION
     Dosage: FORM: DISPERSIBLE TABLET
     Route: 064
     Dates: start: 20090225
  24. GYNO-PEVARYL [Concomitant]
     Dates: start: 20081126, end: 20081202
  25. FLAGYL [Concomitant]
     Dates: start: 20081126, end: 20081202

REACTIONS (1)
  - INTRA-UTERINE DEATH [None]
